FAERS Safety Report 25234572 (Version 2)
Quarter: 2025Q2

REPORT INFORMATION
  Report Type: Spontaneous
  Country: GB (occurrence: GB)
  Receive Date: 20250424
  Receipt Date: 20250527
  Transmission Date: 20250716
  Serious: Yes (Hospitalization, Other)
  Sender: AUROBINDO
  Company Number: GB-MLMSERVICE-20250402-PI465691-00217-1

PATIENT
  Sex: Male

DRUGS (4)
  1. METFORMIN [Suspect]
     Active Substance: METFORMIN HYDROCHLORIDE
     Indication: Product used for unknown indication
     Route: 065
  2. AMITRIPTYLINE [Suspect]
     Active Substance: AMITRIPTYLINE
     Indication: Product used for unknown indication
     Route: 065
  3. GLUCAGON [Concomitant]
     Active Substance: GLUCAGON
     Indication: Bradycardia
     Route: 065
  4. Isoprenalin [Concomitant]
     Indication: Bradycardia
     Route: 065

REACTIONS (4)
  - Cardiac arrest [Unknown]
  - Lactic acidosis [Unknown]
  - Dumping syndrome [Unknown]
  - Accidental overdose [Unknown]
